FAERS Safety Report 5989894-6 (Version None)
Quarter: 2008Q4

REPORT INFORMATION
  Report Type: 
  Country: None (occurrence: None)
  Receive Date: 20081209
  Receipt Date: 20081128
  Transmission Date: 20090506
  Serious: Yes (Hospitalization, Congenital Anomaly)
  Sender: FDA-Public Use
  Company Number: 2008JP005635

PATIENT
  Age: 35 Year
  Sex: Female
  Weight: 60 kg

DRUGS (16)
  1. TACROLIMUS [Suspect]
     Indication: LUPUS NEPHRITIS
     Dosage: 2 MG, /D, ORAL, 3MG, /D, ORAL
     Route: 048
     Dates: start: 20070419, end: 20070530
  2. TACROLIMUS [Suspect]
     Indication: LUPUS NEPHRITIS
     Dosage: 2 MG, /D, ORAL, 3MG, /D, ORAL
     Route: 048
     Dates: start: 20070531
  3. PREDNISOLONE [Suspect]
     Indication: LUPUS NEPHRITIS
     Dosage: 20 MG, QOD, ORAL, 30 MG, /D, ORAL, 25 MG, /D, ORAL
     Route: 048
     Dates: end: 20070816
  4. PREDNISOLONE [Suspect]
     Indication: LUPUS NEPHRITIS
     Dosage: 20 MG, QOD, ORAL, 30 MG, /D, ORAL, 25 MG, /D, ORAL
     Route: 048
     Dates: start: 20070817, end: 20071206
  5. PREDNISOLONE [Suspect]
     Indication: LUPUS NEPHRITIS
     Dosage: 20 MG, QOD, ORAL, 30 MG, /D, ORAL, 25 MG, /D, ORAL
     Route: 048
     Dates: start: 20071207, end: 20080104
  6. PREDNISOLONE [Suspect]
     Indication: LUPUS NEPHRITIS
     Dosage: 20 MG, QOD, ORAL, 30 MG, /D, ORAL, 25 MG, /D, ORAL
     Route: 048
     Dates: start: 20080105, end: 20080509
  7. PREDNISOLONE [Suspect]
     Indication: LUPUS NEPHRITIS
     Dosage: 20 MG, QOD, ORAL, 30 MG, /D, ORAL, 25 MG, /D, ORAL
     Route: 048
     Dates: start: 20080711
  8. ONE-ALPHA(ALFACALCIDOL) PER ORAL NOS [Suspect]
     Indication: DRUG USE FOR UNKNOWN INDICATION
     Dosage: 0.5 UG,  /D, ORAL
     Route: 048
  9. LOSARTAN POTASSIUM [Suspect]
     Indication: DRUG USE FOR UNKNOWN INDICATION
     Dosage: 25 MG,  /D, ORAL, 50 MG, /D, ORAL
     Route: 048
     Dates: end: 20080304
  10. LOSARTAN POTASSIUM [Suspect]
     Indication: DRUG USE FOR UNKNOWN INDICATION
     Dosage: 25 MG,  /D, ORAL, 50 MG, /D, ORAL
     Route: 048
     Dates: start: 20080305
  11. TAGAMET [Suspect]
     Indication: DRUG USE FOR UNKNOWN INDICATION
     Dosage: 200 MG,  /D, ORAL
     Route: 048
     Dates: end: 20080309
  12. LIPITOR [Suspect]
     Indication: DRUG USE FOR UNKNOWN INDICATION
     Dosage: 5 MG,  /D, ORAL
     Route: 048
  13. ISCOTIN(ISONIAZID) PER ORAL NOS [Suspect]
     Indication: DRUG USE FOR UNKNOWN INDICATION
     Dosage: 300 MG,  /D, ORAL
     Route: 048
     Dates: start: 20080229, end: 20080711
  14. REMICADE [Suspect]
     Indication: DRUG USE FOR UNKNOWN INDICATION
     Dosage: 200 MG, /D,
     Dates: start: 20080229
  15. REMICADE [Suspect]
     Indication: DRUG USE FOR UNKNOWN INDICATION
     Dosage: 200 MG,  /D, ORAL
     Route: 048
     Dates: start: 20080314
  16. REMICADE [Suspect]
     Indication: DRUG USE FOR UNKNOWN INDICATION
     Dosage: 200 MG,  /D, ORAL
     Route: 048
     Dates: start: 20080410

REACTIONS (14)
  - ABORTION MISSED [None]
  - BLOOD PRESSURE INCREASED [None]
  - CONDITION AGGRAVATED [None]
  - DRUG EXPOSURE DURING PREGNANCY [None]
  - GLUCOSE URINE PRESENT [None]
  - IMMUNOSUPPRESSANT DRUG LEVEL DECREASED [None]
  - INAPPROPRIATE SCHEDULE OF DRUG ADMINISTRATION [None]
  - LUPUS NEPHRITIS [None]
  - PLATELET COUNT DECREASED [None]
  - PREGNANCY [None]
  - REFUSAL OF TREATMENT BY PATIENT [None]
  - SYSTEMIC LUPUS ERYTHEMATOSUS [None]
  - TREATMENT NONCOMPLIANCE [None]
  - WHITE BLOOD CELL COUNT DECREASED [None]
